FAERS Safety Report 5837780-4 (Version None)
Quarter: 2008Q3

REPORT INFORMATION
  Report Type: 
  Country: None (occurrence: None)
  Receive Date: 20080807
  Receipt Date: 20080729
  Transmission Date: 20090109
  Serious: Yes (Other)
  Sender: FDA-Public Use
  Company Number: US-GENENTECH-265518

PATIENT

DRUGS (6)
  1. RITUXAN [Suspect]
     Indication: B-CELL LYMPHOMA
     Dosage: 375 MG/M2, UNK
  2. RITUXAN [Suspect]
     Dosage: 1000 MG/M2, UNK
  3. FLUDARABINE PHOSPHATE [Suspect]
     Indication: B-CELL LYMPHOMA
     Dosage: 30 MG/M2, UNK
     Route: 042
  4. CYCLOPHOSPHAMIDE [Suspect]
     Indication: B-CELL LYMPHOMA
     Dosage: 750 MG/M2, UNK
     Route: 042
  5. METHOTREXATE [Concomitant]
     Indication: GRAFT VERSUS HOST DISEASE
  6. TACROLIMUS [Concomitant]
     Indication: GRAFT VERSUS HOST DISEASE

REACTIONS (1)
  - SUBDURAL HAEMATOMA [None]
